FAERS Safety Report 5785963-4 (Version None)
Quarter: 2008Q2

REPORT INFORMATION
  Report Type: 
  Country: None (occurrence: None)
  Receive Date: 20080624
  Receipt Date: 20080610
  Transmission Date: 20081010
  Serious: Yes (Hospitalization, Other)
  Sender: FDA-Public Use
  Company Number: PHHY2008BR10775

PATIENT
  Age: 73 Year
  Sex: Male
  Weight: 78 kg

DRUGS (1)
  1. FORASEQ [Suspect]
     Indication: ASTHMA
     Dosage: 12/400MCG,
     Dates: start: 20060601

REACTIONS (6)
  - NOSOCOMIAL INFECTION [None]
  - PNEUMONIA [None]
  - PULMONARY EMBOLISM [None]
  - SWELLING [None]
  - TRACHEOSTOMY [None]
  - WEIGHT DECREASED [None]
